FAERS Safety Report 19336429 (Version 1)
Quarter: 2021Q2

REPORT INFORMATION
  Report Type: Spontaneous
  Country: US (occurrence: US)
  Receive Date: 20210530
  Receipt Date: 20210530
  Transmission Date: 20210717
  Serious: Yes (Other)
  Sender: FDA-Public Use
  Company Number: US-PURDUE-USA-2020-0207329

PATIENT
  Sex: Female

DRUGS (8)
  1. OXYCONTIN [Suspect]
     Active Substance: OXYCODONE HYDROCHLORIDE
     Indication: MIGRAINE
  2. OXYCODONE/ ACETAMINOPHEN TABLETS [Suspect]
     Active Substance: ACETAMINOPHEN\OXYCODONE HYDROCHLORIDE
     Indication: MIGRAINE
  3. HYDROCODONE BITARTRATE/ACETAMINOPHEN [Suspect]
     Active Substance: ACETAMINOPHEN\HYDROCODONE BITARTRATE
     Indication: MIGRAINE
  4. TRAMADOL CR TABLETS (RHODES 21?745) [Suspect]
     Active Substance: TRAMADOL
     Indication: BACK PAIN
     Dosage: 50 MG, UNK
     Route: 048
  5. TRAMADOL CR TABLETS (RHODES 21?745) [Suspect]
     Active Substance: TRAMADOL
     Indication: MIGRAINE
  6. OXYCODONE/ ACETAMINOPHEN TABLETS [Suspect]
     Active Substance: ACETAMINOPHEN\OXYCODONE HYDROCHLORIDE
     Indication: BACK PAIN
     Dosage: UNKNOWN
     Route: 048
  7. OXYCONTIN [Suspect]
     Active Substance: OXYCODONE HYDROCHLORIDE
     Indication: BACK PAIN
     Dosage: UNKNOWN
     Route: 048
  8. HYDROCODONE BITARTRATE/ACETAMINOPHEN [Suspect]
     Active Substance: ACETAMINOPHEN\HYDROCODONE BITARTRATE
     Indication: BACK PAIN
     Dosage: UNKNOWN
     Route: 048

REACTIONS (1)
  - Drug dependence [Unknown]
